FAERS Safety Report 23090780 (Version 1)
Quarter: 2023Q4

REPORT INFORMATION
  Report Type: Spontaneous
  Country: US (occurrence: US)
  Receive Date: 20231020
  Receipt Date: 20231020
  Transmission Date: 20240109
  Serious: Yes (Hospitalization, Other)
  Sender: FDA-Public Use
  Company Number: US-SUN PHARMACEUTICAL INDUSTRIES LTD-2023R1-413172

PATIENT
  Age: 26 Year
  Sex: Male

DRUGS (3)
  1. FOLIC ACID [Suspect]
     Active Substance: FOLIC ACID
     Indication: Sickle cell anaemia with crisis
     Dosage: 1 MILLIGRAM, DAILY
     Route: 065
  2. ACETAMINOPHEN\HYDROCODONE [Suspect]
     Active Substance: ACETAMINOPHEN\HYDROCODONE
     Indication: Sickle cell anaemia with crisis
     Dosage: 325 MILLIGRAM
  3. IBUPROFEN [Suspect]
     Active Substance: IBUPROFEN
     Indication: Sickle cell anaemia with crisis
     Dosage: 600 MILLIGRAM
     Route: 065

REACTIONS (1)
  - Therapy non-responder [Unknown]
